FAERS Safety Report 24036040 (Version 1)
Quarter: 2024Q3

REPORT INFORMATION
  Report Type: Spontaneous
  Country: US (occurrence: US)
  Receive Date: 20240701
  Receipt Date: 20240701
  Transmission Date: 20241017
  Serious: No
  Sender: AMGEN
  Company Number: US-AMGEN-USASP2024126058

PATIENT
  Age: 65 Year
  Sex: Female

DRUGS (14)
  1. REPATHA [Suspect]
     Active Substance: EVOLOCUMAB
     Indication: Hepatic enzyme increased
     Dosage: 140 MILLIGRAM, Q2WK
     Route: 058
  2. REPATHA [Suspect]
     Active Substance: EVOLOCUMAB
     Route: 058
  3. REPATHA [Suspect]
     Active Substance: EVOLOCUMAB
     Route: 058
  4. REPATHA [Suspect]
     Active Substance: EVOLOCUMAB
     Route: 058
  5. REPATHA [Suspect]
     Active Substance: EVOLOCUMAB
     Route: 058
  6. REPATHA [Suspect]
     Active Substance: EVOLOCUMAB
     Route: 058
  7. REPATHA [Suspect]
     Active Substance: EVOLOCUMAB
     Route: 058
  8. REPATHA [Suspect]
     Active Substance: EVOLOCUMAB
     Route: 058
  9. REPATHA [Suspect]
     Active Substance: EVOLOCUMAB
     Route: 058
  10. REPATHA [Suspect]
     Active Substance: EVOLOCUMAB
     Route: 058
  11. REPATHA [Suspect]
     Active Substance: EVOLOCUMAB
     Route: 058
  12. REPATHA [Suspect]
     Active Substance: EVOLOCUMAB
     Route: 058
  13. REPATHA [Suspect]
     Active Substance: EVOLOCUMAB
     Route: 058
  14. REPATHA [Suspect]
     Active Substance: EVOLOCUMAB
     Route: 058

REACTIONS (2)
  - Device difficult to use [Unknown]
  - Drug dose omission by device [Unknown]

NARRATIVE: CASE EVENT DATE: 20240624
